FAERS Safety Report 6233880-8 (Version None)
Quarter: 2009Q2

REPORT INFORMATION
  Report Type: 
  Country: None (occurrence: None)
  Receive Date: 20090618
  Receipt Date: 20090616
  Transmission Date: 20091009
  Serious: Yes (Hospitalization)
  Sender: FDA-Public Use
  Company Number: US-BRISTOL-MYERS SQUIBB COMPANY-14648463

PATIENT
  Age: 17 Year
  Sex: Male

DRUGS (5)
  1. ABILIFY [Suspect]
     Indication: BIPOLAR DISORDER
     Dates: start: 20090521
  2. LITHIUM [Suspect]
     Dates: start: 20090504
  3. BENZTROPINE [Suspect]
  4. TEMAZEPAM [Suspect]
  5. DEPAKOTE [Suspect]

REACTIONS (3)
  - CONFUSIONAL STATE [None]
  - HALLUCINATION, AUDITORY [None]
  - HALLUCINATION, VISUAL [None]
